FAERS Safety Report 12497662 (Version 1)
Quarter: 2016Q2

REPORT INFORMATION
  Report Type: Spontaneous
  Country: US (occurrence: US)
  Receive Date: 20160625
  Receipt Date: 20160625
  Transmission Date: 20160815
  Serious: Yes (Hospitalization, Other)
  Sender: FDA-Public Use
  Company Number: US-ZYDUS-011357

PATIENT
  Age: 81 Year
  Sex: Female

DRUGS (9)
  1. KETOROLAC [Suspect]
     Active Substance: KETOROLAC\KETOROLAC TROMETHAMINE
     Indication: NECK PAIN
     Route: 030
  2. OLMESARTAN [Concomitant]
     Active Substance: OLMESARTAN
     Indication: TRANSIENT ISCHAEMIC ATTACK
     Route: 065
  3. CALCIUM GLUCONATE. [Concomitant]
     Active Substance: CALCIUM GLUCONATE
     Indication: TRANSIENT ISCHAEMIC ATTACK
     Route: 048
  4. CLOPIDOGREL [Suspect]
     Active Substance: CLOPIDOGREL BISULFATE
     Indication: TRANSIENT ISCHAEMIC ATTACK
  5. OMEPRAZOLE. [Concomitant]
     Active Substance: OMEPRAZOLE
     Indication: TRANSIENT ISCHAEMIC ATTACK
     Route: 065
  6. PARACETAMOL/PROPOXYPHENE [Concomitant]
     Indication: TRANSIENT ISCHAEMIC ATTACK
     Route: 065
  7. HYDROCODONE/PARACETAMOL [Concomitant]
     Indication: TRANSIENT ISCHAEMIC ATTACK
     Route: 065
  8. FENOFIBRATE. [Concomitant]
     Active Substance: FENOFIBRATE
     Indication: TRANSIENT ISCHAEMIC ATTACK
     Route: 065
  9. ALPRAZOLAM. [Concomitant]
     Active Substance: ALPRAZOLAM
     Indication: TRANSIENT ISCHAEMIC ATTACK
     Route: 065

REACTIONS (7)
  - Neck pain [Recovering/Resolving]
  - Paraesthesia [Recovering/Resolving]
  - Weight bearing difficulty [Recovering/Resolving]
  - Bleeding time prolonged [Recovering/Resolving]
  - Extradural haematoma [Recovered/Resolved]
  - Motor dysfunction [Recovering/Resolving]
  - Sensory loss [Recovering/Resolving]
